FAERS Safety Report 7772641-5 (Version None)
Quarter: 2011Q3

REPORT INFORMATION
  Report Type: 
  Country: None (occurrence: None)
  Receive Date: 20110922
  Receipt Date: 20110706
  Transmission Date: 20111222
  Serious: No
  Sender: FDA-Public Use
  Company Number: US-ASTRAZENECA-2011SE39194

PATIENT
  Age: 54 Year
  Sex: Male
  Weight: 72.6 kg

DRUGS (9)
  1. SEROQUEL [Suspect]
     Indication: BIPOLAR DISORDER
     Route: 048
  2. ZOLPIDEM [Concomitant]
     Indication: SLEEP DISORDER
  3. SEROQUEL [Suspect]
     Route: 048
  4. SEROQUEL [Suspect]
     Route: 048
  5. BENZONATATE [Concomitant]
     Indication: SINUS DISORDER
  6. SEROQUEL [Suspect]
     Route: 048
  7. PRISTIQ [Concomitant]
  8. KLONOPIN [Concomitant]
  9. MELOXICAM [Concomitant]
     Indication: ARTHRITIS

REACTIONS (7)
  - SOMNOLENCE [None]
  - LETHARGY [None]
  - NAUSEA [None]
  - ADVERSE DRUG REACTION [None]
  - FEELING ABNORMAL [None]
  - FATIGUE [None]
  - HYPERHIDROSIS [None]
